FAERS Safety Report 15797148 (Version 1)
Quarter: 2018Q4

REPORT INFORMATION
  Report Type: Spontaneous
  Country: US (occurrence: US)
  Receive Date: 20181231
  Receipt Date: 20181231
  Transmission Date: 20190205
  Serious: Yes (Hospitalization)
  Sender: FDA-Public Use
  Company Number: None

PATIENT

DRUGS (2)
  1. BUPIVACAINE HCL BUPIVACAINE HCL [Suspect]
     Active Substance: BUPIVACAINE
  2. PANTOPRAZOLE SODIUM PANTOPRAZOLE [Suspect]
     Active Substance: PANTOPRAZOLE SODIUM

REACTIONS (2)
  - Product storage error [None]
  - Product appearance confusion [None]
